FAERS Safety Report 17788813 (Version 1)
Quarter: 2020Q2

REPORT INFORMATION
  Report Type: Spontaneous
  Country: US (occurrence: US)
  Receive Date: 20200514
  Receipt Date: 20200514
  Transmission Date: 20200714
  Serious: Yes (Hospitalization)
  Sender: FDA-Public Use
  Company Number: US-TEVA-2020-US-1234131

PATIENT
  Age: 72 Year
  Sex: Male

DRUGS (11)
  1. VANCOMYCIN [Concomitant]
     Active Substance: VANCOMYCIN
     Indication: ANTIBIOTIC THERAPY
     Route: 065
  2. LINEZOLID. [Suspect]
     Active Substance: LINEZOLID
     Indication: ANTIBIOTIC THERAPY
     Route: 065
  3. PIPERACILLIN AND TAZOBACTAM [Concomitant]
     Active Substance: PIPERACILLIN SODIUM\TAZOBACTAM SODIUM
     Indication: ANTIBIOTIC THERAPY
     Route: 065
  4. METHOTREXATE. [Suspect]
     Active Substance: METHOTREXATE
     Indication: GOUT
     Route: 065
  5. WARFARIN [Suspect]
     Active Substance: WARFARIN
     Indication: ANTICOAGULANT THERAPY
     Route: 065
  6. PREDNISONE. [Suspect]
     Active Substance: PREDNISONE
     Indication: GOUTY TOPHUS
     Dosage: 20 MILLIGRAM DAILY;
     Route: 048
  7. TIGECYCLINE. [Concomitant]
     Active Substance: TIGECYCLINE
     Indication: ANTIBIOTIC THERAPY
     Route: 065
  8. AZITHROMYCIN ANHYDROUS. [Concomitant]
     Active Substance: AZITHROMYCIN ANHYDROUS
     Indication: ANTIBIOTIC THERAPY
     Route: 065
  9. AMIKACIN. [Suspect]
     Active Substance: AMIKACIN
     Indication: ANTIBIOTIC THERAPY
     Route: 042
  10. PREDNISONE. [Suspect]
     Active Substance: PREDNISONE
     Indication: IMMUNOSUPPRESSANT DRUG THERAPY
     Dosage: 5 MILLIGRAM DAILY;
     Route: 048
  11. ANAKINRA [Suspect]
     Active Substance: ANAKINRA
     Indication: GOUT
     Route: 065

REACTIONS (3)
  - Anticoagulation drug level above therapeutic [Unknown]
  - Mycobacterium chelonae infection [Recovered/Resolved]
  - Immune reconstitution inflammatory syndrome [Recovered/Resolved]
